FAERS Safety Report 9129485 (Version 1)
Quarter: 2013Q1

REPORT INFORMATION
  Report Type: Spontaneous
  Country: FR (occurrence: FR)
  Receive Date: 20130228
  Receipt Date: 20130228
  Transmission Date: 20140127
  Serious: Yes (Death, Congenital Anomaly)
  Sender: FDA-Public Use
  Company Number: FR-GLAXOSMITHKLINE-B0868463B

PATIENT
  Sex: Male

DRUGS (3)
  1. LAMICTAL [Suspect]
     Indication: DEPRESSION
     Dosage: 50MG PER DAY
     Route: 064
     Dates: start: 201207, end: 20121008
  2. ZOLOFT [Suspect]
     Route: 064
     Dates: start: 201207, end: 20121008
  3. GESTODEN + ETHINYLESTRADIOL [Concomitant]
     Indication: CONTRACEPTION
     Route: 064

REACTIONS (16)
  - Multiple congenital abnormalities [Fatal]
  - Adactyly [Fatal]
  - Limb reduction defect [Fatal]
  - Hypotelorism of orbit [Fatal]
  - Spina bifida [Fatal]
  - Duodenal atresia [Fatal]
  - Renal aplasia [Fatal]
  - Ill-defined disorder [Fatal]
  - Spina bifida [Fatal]
  - Osteogenesis imperfecta [Fatal]
  - Umbilical artery hypoplasia [Fatal]
  - Congenital intestinal malformation [Fatal]
  - Spine malformation [Fatal]
  - Foetal exposure during pregnancy [Unknown]
  - Incorrect dose administered [Unknown]
  - Maternal drugs affecting foetus [None]
